FAERS Safety Report 18729797 (Version 1)
Quarter: 2021Q1

REPORT INFORMATION
  Report Type: Report from Study
  Country: AR (occurrence: AR)
  Receive Date: 20210112
  Receipt Date: 20210112
  Transmission Date: 20210419
  Serious: Yes (Other)
  Sender: FDA-Public Use
  Company Number: NVSC2021AR004333

PATIENT
  Age: 16 Year
  Sex: Male
  Weight: 74 kg

DRUGS (2)
  1. DABRAFENIB [Suspect]
     Active Substance: DABRAFENIB
     Indication: ASTROCYTOMA
     Dosage: UNK
     Route: 048
     Dates: start: 20200707, end: 20210106
  2. TRAMETINIB [Suspect]
     Active Substance: TRAMETINIB
     Indication: ASTROCYTOMA
     Dosage: 2 MG
     Route: 048
     Dates: start: 20200707, end: 20210106

REACTIONS (4)
  - Paronychia [Unknown]
  - Skin infection [Unknown]
  - Pruritus [Unknown]
  - Skin toxicity [Not Recovered/Not Resolved]

NARRATIVE: CASE EVENT DATE: 20210106
